FAERS Safety Report 7780180-0 (Version None)
Quarter: 2011Q3

REPORT INFORMATION
  Report Type: 
  Country: None (occurrence: None)
  Receive Date: 20110927
  Receipt Date: 20110927
  Transmission Date: 20111222
  Serious: Yes (Hospitalization)
  Sender: FDA-Public Use
  Company Number: None

PATIENT
  Age: 62 Year
  Sex: Male
  Weight: 80.1 kg

DRUGS (1)
  1. LENALIDOMIDE [Suspect]
     Indication: CHRONIC LYMPHOCYTIC LEUKAEMIA
     Dosage: 5MG
     Route: 048
     Dates: start: 20110909, end: 20110925

REACTIONS (5)
  - MUSCULOSKELETAL CHEST PAIN [None]
  - ATELECTASIS [None]
  - INFECTION [None]
  - PAIN [None]
  - PNEUMONIA [None]
